FAERS Safety Report 9664597 (Version 2)
Quarter: 2013Q4

REPORT INFORMATION
  Report Type: Other
  Country: JP (occurrence: JP)
  Receive Date: 20131101
  Receipt Date: 20131126
  Transmission Date: 20140711
  Serious: No
  Sender: FDA-Public Use
  Company Number: JP-BRISTOL-MYERS SQUIBB COMPANY-19724368

PATIENT
  Age: 52 Year
  Sex: Female

DRUGS (4)
  1. ERBITUX SOLN FOR INF 5MG/ML [Suspect]
     Indication: RECTAL CANCER
     Route: 041
     Dates: start: 20111019, end: 20121226
  2. IRINOTECAN HCL [Suspect]
     Indication: RECTAL CANCER
     Route: 041
     Dates: start: 20111019, end: 20121226
  3. 5-FLUOROURACIL [Concomitant]
     Indication: RECTAL CANCER
     Route: 041
     Dates: start: 20131019
  4. CALCIUM FOLINATE [Concomitant]
     Indication: RECTAL CANCER
     Route: 041
     Dates: start: 20111019

REACTIONS (3)
  - Neutropenia [Recovered/Resolved]
  - Skin reaction [Recovering/Resolving]
  - Fatigue [Recovered/Resolved]
